FAERS Safety Report 9632617 (Version 1)
Quarter: 2013Q4

REPORT INFORMATION
  Report Type: Report from Study
  Country: NL (occurrence: NL)
  Receive Date: 20131018
  Receipt Date: 20131018
  Transmission Date: 20140711
  Serious: Yes (Other)
  Sender: FDA-Public Use
  Company Number: NL-ROCHE-1290523

PATIENT
  Sex: Female

DRUGS (1)
  1. MIRCERA [Suspect]
     Indication: PRODUCT USED FOR UNKNOWN INDICATION
     Dosage: 50 FLUID FOR INJECTION 167UG/ML WWSP 0.3ML.
     Route: 058
     Dates: start: 20101230, end: 20111005

REACTIONS (1)
  - Cerebrovascular accident [Unknown]
